FAERS Safety Report 18430061 (Version 1)
Quarter: 2020Q4

REPORT INFORMATION
  Report Type: Spontaneous
  Country: FR (occurrence: FR)
  Receive Date: 20201027
  Receipt Date: 20201027
  Transmission Date: 20210114
  Serious: Yes (Death, Hospitalization, Other)
  Sender: FDA-Public Use
  Company Number: FR-TAKEDA-2019TUS042101

PATIENT
  Sex: Male
  Weight: 118 kg

DRUGS (1)
  1. NINLARO [Suspect]
     Active Substance: IXAZOMIB CITRATE
     Indication: PLASMA CELL MYELOMA
     Dosage: 3 MILLIGRAM
     Route: 065
     Dates: start: 20190201, end: 20190228

REACTIONS (10)
  - Eschar [Recovering/Resolving]
  - Hyperthermia [Recovered/Resolved]
  - Haematotoxicity [Recovering/Resolving]
  - Thrombocytopenia [Unknown]
  - Pneumococcal bacteraemia [Recovered/Resolved]
  - Haematuria [Recovered/Resolved]
  - Sepsis [Recovered/Resolved]
  - Disturbance in attention [Recovered/Resolved]
  - Disease progression [Fatal]
  - Asthenia [Recovered/Resolved]

NARRATIVE: CASE EVENT DATE: 20190228
